FAERS Safety Report 5332198-5 (Version None)
Quarter: 2007Q1

REPORT INFORMATION
  Report Type: 
  Country: None (occurrence: None)
  Receive Date: 20070306
  Receipt Date: 20060926
  Transmission Date: 20070707
  Serious: Yes (Hospitalization)
  Sender: FDA-Public Use
  Company Number: A03200606004

PATIENT
  Age: 70 Year
  Sex: Male
  Weight: 67.12 kg

DRUGS (13)
  1. PLAVIX [Suspect]
     Indication: VASCULAR BYPASS GRAFT
     Dosage: 75 MG QD - ORAL
     Route: 048
     Dates: start: 20000501
  2. ACETYLSALICYLIC ACID SRT [Concomitant]
  3. METOPROLOL TARTRATE [Concomitant]
  4. SIMVASTATIN [Concomitant]
  5. NIACIN [Concomitant]
  6. ENALAPRIL MALEATE [Concomitant]
  7. AMIODARONE HCL [Concomitant]
  8. TAMSULOSIN HCL [Concomitant]
  9. FISH OIL [Concomitant]
  10. VITAMIN B-12 [Concomitant]
  11. VITAMIN B6 [Concomitant]
  12. FOLIC ACID [Concomitant]
  13. MULTIVITAMINS WITH IRON [Concomitant]

REACTIONS (4)
  - CONTUSION [None]
  - CORONARY ARTERY OCCLUSION [None]
  - HAEMORRHAGIC DIATHESIS [None]
  - PLATELET COUNT DECREASED [None]
